FAERS Safety Report 18084117 (Version 4)
Quarter: 2020Q4

REPORT INFORMATION
  Report Type: Report from Study
  Country: US (occurrence: US)
  Receive Date: 20200728
  Receipt Date: 20201231
  Transmission Date: 20210113
  Serious: No
  Sender: FDA-Public Use
  Company Number: NVSC2020US210301

PATIENT
  Sex: Female

DRUGS (2)
  1. COSENTYX [Suspect]
     Active Substance: SECUKINUMAB
     Indication: ANKYLOSING SPONDYLITIS
     Dosage: 300 MG, QW
     Route: 058
  2. COSENTYX [Suspect]
     Active Substance: SECUKINUMAB
     Dosage: UNK UNK, QMO (BENEATH THE SKIN,USUALLY VIA INJECTION)
     Route: 058

REACTIONS (5)
  - Rhinorrhoea [Unknown]
  - Throat irritation [Unknown]
  - Hypersensitivity [Recovering/Resolving]
  - Upper-airway cough syndrome [Recovering/Resolving]
  - Nasopharyngitis [Recovering/Resolving]
